FAERS Safety Report 5226464-1 (Version None)
Quarter: 2007Q1

REPORT INFORMATION
  Report Type: 
  Country: None (occurrence: None)
  Receive Date: 20061201
  Receipt Date: 20060918
  Transmission Date: 20070707
  Serious: No
  Sender: FDA-Public Use
  Company Number: US200609004618

PATIENT
  Age: 62 Year
  Sex: Female

DRUGS (1)
  1. CYMBALTA [Suspect]
     Indication: AFFECTIVE DISORDER
     Dosage: 60 MG
     Dates: start: 20060807

REACTIONS (4)
  - DRY MOUTH [None]
  - INSOMNIA [None]
  - MOVEMENT DISORDER [None]
  - RESTLESS LEGS SYNDROME [None]
